FAERS Safety Report 6278319-1 (Version None)
Quarter: 2009Q3

REPORT INFORMATION
  Report Type: 
  Country: None (occurrence: None)
  Receive Date: 20090722
  Receipt Date: 20090714
  Transmission Date: 20100115
  Serious: Yes (Other)
  Sender: FDA-Public Use
  Company Number: JP-ASTRAZENECA-2009SE05037

PATIENT
  Age: 96 Year
  Sex: Male

DRUGS (7)
  1. BLOPRESS [Suspect]
     Indication: HYPERTENSION
     Route: 048
     Dates: start: 20080401, end: 20090107
  2. TAKEPRON [Concomitant]
  3. AMLODIPINE [Concomitant]
     Route: 048
  4. MUCODYNE [Concomitant]
     Route: 048
  5. THEO-DUR [Concomitant]
     Route: 048
  6. AMARYL [Concomitant]
     Route: 048
  7. ITOROL [Concomitant]
     Route: 048

REACTIONS (1)
  - INTERSTITIAL LUNG DISEASE [None]
